FAERS Safety Report 24102393 (Version 1)
Quarter: 2024Q3

REPORT INFORMATION
  Report Type: Other
  Country: GB (occurrence: GB)
  Receive Date: 20240717
  Receipt Date: 20240717
  Transmission Date: 20241016
  Serious: Yes (Other)
  Sender: GE HEALTHCARE
  Company Number: None

PATIENT
  Age: 57 Year

DRUGS (2)
  1. OMNIPAQUE [Suspect]
     Active Substance: IOHEXOL
     Indication: Scan with contrast
     Dosage: 50 ML, TOTAL
     Route: 065
  2. OMNIPAQUE [Suspect]
     Active Substance: IOHEXOL
     Dosage: 100 ML, TOTAL
     Route: 065

REACTIONS (2)
  - Aneurysm ruptured [Unknown]
  - Encephalopathy [Unknown]

NARRATIVE: CASE EVENT DATE: 20231220
